FAERS Safety Report 6711705-1 (Version None)
Quarter: 2010Q2

REPORT INFORMATION
  Report Type: 
  Country: None (occurrence: None)
  Receive Date: 20100505
  Receipt Date: 20100427
  Transmission Date: 20101027
  Serious: Yes (Hospitalization, Other)
  Sender: FDA-Public Use
  Company Number: JP-ROCHE-669670

PATIENT
  Sex: Male

DRUGS (8)
  1. TOCILIZUMAB [Suspect]
     Indication: RHEUMATOID ARTHRITIS
     Route: 041
     Dates: start: 20090331, end: 20090331
  2. TOCILIZUMAB [Suspect]
     Route: 041
     Dates: start: 20090428, end: 20090428
  3. TOCILIZUMAB [Suspect]
     Route: 041
     Dates: start: 20090820, end: 20090820
  4. PREDNISOLONE [Concomitant]
     Dosage: DRUG NAME REPORTED: PREDOHAN.
     Route: 048
  5. KEISHI-TO [Concomitant]
     Dosage: DRUG NAME: KEISHI-KA-JUTSUBU-TO, GRANULATED POWDER
     Route: 048
     Dates: end: 20090428
  6. MUCOSTA [Concomitant]
     Route: 048
  7. MYONAL [Concomitant]
     Route: 048
  8. ACTONEL [Concomitant]
     Route: 048

REACTIONS (3)
  - BLOOD PRESSURE DECREASED [None]
  - PROSTATE CANCER [None]
  - PURULENCE [None]
